FAERS Safety Report 24623089 (Version 1)
Quarter: 2024Q4

REPORT INFORMATION
  Report Type: Spontaneous
  Country: CN (occurrence: CN)
  Receive Date: 20241115
  Receipt Date: 20241115
  Transmission Date: 20250114
  Serious: No
  Sender: TRIS PHARMA, INC.
  Company Number: CN-TRIS PHARMA, INC.-24CN011742

PATIENT

DRUGS (1)
  1. QUILLIVANT XR [Suspect]
     Active Substance: METHYLPHENIDATE HYDROCHLORIDE
     Indication: Attention deficit hyperactivity disorder
     Dosage: 20 MILLIGRAM, 4 TIMES A DAY FOR SEVERAL DAYS
     Route: 048
     Dates: end: 20241105

REACTIONS (2)
  - Agitation [Unknown]
  - Accidental overdose [Unknown]
